FAERS Safety Report 5255240-9 (Version None)
Quarter: 2007Q1

REPORT INFORMATION
  Report Type: 
  Country: None (occurrence: None)
  Receive Date: 20061201
  Receipt Date: 20060808
  Transmission Date: 20070707
  Serious: No
  Sender: FDA-Public Use
  Company Number: 2006PV019131

PATIENT
  Age: 60 Year
  Sex: Male
  Weight: 88.4514 kg

DRUGS (3)
  1. BYETTA [Suspect]
     Indication: DIABETES MELLITUS NON-INSULIN-DEPENDENT
     Dosage: BID;SC
     Route: 058
     Dates: start: 20060807
  2. AMARYL [Concomitant]
  3. GLUCOPHAGE ^UNS^ [Concomitant]

REACTIONS (2)
  - BLOOD GLUCOSE INCREASED [None]
  - POLLAKIURIA [None]
